FAERS Safety Report 9225098 (Version 1)
Quarter: 2013Q2

REPORT INFORMATION
  Report Type: Spontaneous
  Country: CN (occurrence: CN)
  Receive Date: 20130411
  Receipt Date: 20130411
  Transmission Date: 20140414
  Serious: No
  Sender: FDA-Public Use
  Company Number: CN-JNJFOC-20130318694

PATIENT
  Age: 69 Year
  Sex: Male

DRUGS (2)
  1. DUROGESIC [Suspect]
     Indication: CANCER PAIN
     Dosage: 8.4 MILLIGRAM
     Route: 062
     Dates: start: 20130323, end: 20130327
  2. DUROGESIC [Suspect]
     Indication: CANCER PAIN
     Dosage: 16.8 MILLIGRAM
     Route: 062
     Dates: start: 20130327

REACTIONS (4)
  - Sputum retention [Not Recovered/Not Resolved]
  - Sputum abnormal [Not Recovered/Not Resolved]
  - Drug prescribing error [Unknown]
  - Dyspnoea [Unknown]
